FAERS Safety Report 9558583 (Version 3)
Quarter: 2013Q4

REPORT INFORMATION
  Report Type: Report from Study
  Country: US (occurrence: US)
  Receive Date: 20130926
  Receipt Date: 20131018
  Transmission Date: 20140711
  Serious: Yes (Hospitalization)
  Sender: FDA-Public Use
  Company Number: US-ROCHE-1276990

PATIENT
  Age: 58 Year
  Sex: Female

DRUGS (29)
  1. TOCILIZUMAB [Suspect]
     Indication: RHEUMATOID ARTHRITIS
     Dosage: DATE OF THE LAST DOSE PRIOR TO AE ONSET : 16/JUL/2013.
     Route: 042
     Dates: start: 20120228
  2. KLONOPIN [Concomitant]
     Route: 048
     Dates: start: 20120727, end: 20120901
  3. PREDNISONE [Concomitant]
     Indication: RHEUMATOID ARTHRITIS
     Route: 048
     Dates: start: 20120518, end: 20120717
  4. PREDNISONE [Concomitant]
     Route: 048
     Dates: start: 20120201, end: 20120512
  5. PREDNISONE [Concomitant]
     Route: 048
     Dates: start: 20120718, end: 20120814
  6. PREDNISONE [Concomitant]
     Route: 048
     Dates: start: 20120815, end: 20130604
  7. PREDNISONE [Concomitant]
     Route: 048
     Dates: start: 20130225, end: 20130304
  8. PREDNISONE [Concomitant]
     Route: 048
     Dates: start: 20130605, end: 20130607
  9. PREDNISONE [Concomitant]
     Route: 048
     Dates: start: 20130608
  10. ENALAPRIL MALEATE [Concomitant]
     Indication: HYPERTENSION
     Route: 048
     Dates: start: 20111102
  11. METFORMIN [Concomitant]
     Indication: TYPE 2 DIABETES MELLITUS
     Route: 048
     Dates: start: 20111102
  12. OMEPRAZOLE [Concomitant]
     Indication: GASTROOESOPHAGEAL REFLUX DISEASE
     Route: 048
     Dates: start: 20111102
  13. MIRTAZAPINE [Concomitant]
     Indication: DEPRESSION
     Route: 048
     Dates: start: 20130418
  14. MIRTAZAPINE [Concomitant]
     Route: 048
     Dates: start: 20120623, end: 20130417
  15. LISINOPRIL [Concomitant]
     Indication: HYPERTENSION
     Route: 048
     Dates: start: 20111102
  16. HYDROCHLOROTHIAZIDE [Concomitant]
     Indication: HYPERTENSION
     Route: 048
     Dates: start: 20111102
  17. FOLIC ACID [Concomitant]
     Indication: PROPHYLAXIS
     Route: 048
     Dates: start: 20111102
  18. ALKA-SELTZER COLD AND SINUS [Concomitant]
     Indication: UPPER RESPIRATORY TRACT INFECTION
     Route: 048
     Dates: start: 20120316, end: 20120319
  19. IBUPROFEN [Concomitant]
     Route: 048
     Dates: start: 20120201, end: 20120521
  20. HYDROCORTISONE CREAM [Concomitant]
     Indication: DERMATITIS CONTACT
     Route: 061
     Dates: start: 20120517, end: 20120710
  21. HYDROCORTISONE CREAM [Concomitant]
     Indication: SEBORRHOEIC DERMATITIS
     Route: 061
     Dates: start: 20130306
  22. KETOCONAZOLE CREAM [Concomitant]
     Route: 061
     Dates: start: 20120814, end: 20120904
  23. LEVAQUIN [Concomitant]
     Indication: PYELONEPHRITIS
     Route: 042
     Dates: start: 20120903, end: 20120911
  24. MAGNESIUM SULFATE [Concomitant]
     Indication: HYPOMAGNESAEMIA
     Route: 042
     Dates: start: 20120903
  25. ZITHROMAX [Concomitant]
     Indication: UPPER RESPIRATORY TRACT INFECTION
     Route: 048
     Dates: start: 20130204
  26. SUMADAN [Concomitant]
     Indication: SEBORRHOEIC DERMATITIS
     Dosage: DOSE : 1 OTHER.
     Route: 061
     Dates: start: 20130426, end: 20130612
  27. METROGEL [Concomitant]
     Indication: SEBORRHOEIC DERMATITIS
     Route: 061
     Dates: start: 20130426, end: 20130612
  28. PRAVASTATIN [Concomitant]
     Indication: HYPERLIPIDAEMIA
     Route: 048
     Dates: start: 20130717
  29. NAPROSYN [Concomitant]
     Indication: LIGAMENT SPRAIN
     Route: 048
     Dates: start: 20130902

REACTIONS (4)
  - Leukocytosis [Recovered/Resolved]
  - Dehydration [Recovered/Resolved]
  - Pyrexia [Recovered/Resolved]
  - Rash [Recovered/Resolved]
